FAERS Safety Report 16850882 (Version 1)
Quarter: 2019Q3

REPORT INFORMATION
  Report Type: Spontaneous
  Country: US (occurrence: US)
  Receive Date: 20190925
  Receipt Date: 20190925
  Transmission Date: 20191005
  Serious: No
  Sender: FDA-Public Use
  Company Number: US-THERAPEUTICSMD-2019TMD01567

PATIENT
  Age: 66 Year
  Sex: Female
  Weight: 76.19 kg

DRUGS (9)
  1. LANTUS [Suspect]
     Active Substance: INSULIN GLARGINE
     Dosage: 18 U, 1X/DAY AT NIGHT
     Dates: start: 2019, end: 20190616
  2. LANTUS [Suspect]
     Active Substance: INSULIN GLARGINE
     Dosage: 12 U, 1X/DAY AT NIGHT
     Dates: start: 20190617
  3. HUMALOG [Suspect]
     Active Substance: INSULIN LISPRO
     Indication: DIABETES MELLITUS
     Dosage: 4 U, 3X/DAY 5-15 MINUTES BEFORE EACH MEAL (BREAKFAST, LUNCH, AND DINNER)
     Dates: start: 20190613
  4. LANTUS [Suspect]
     Active Substance: INSULIN GLARGINE
     Indication: DIABETES MELLITUS
     Dosage: 10 U, 1X/DAY AT NIGHT
     Dates: start: 20190415, end: 2019
  5. TRAMADOL. [Concomitant]
     Active Substance: TRAMADOL
     Dosage: UNK, AS NEEDED
  6. IMVEXXY [Suspect]
     Active Substance: ESTRADIOL
     Indication: VULVOVAGINAL DRYNESS
     Dosage: 10 ?G, 2X/WEEK FIRST THING IN THE MORNING ON TUESDAY AND FRIDAY
     Route: 067
     Dates: start: 20190312
  7. LANTUS [Suspect]
     Active Substance: INSULIN GLARGINE
     Dosage: 15 U, 1X/DAY AT NIGHT
     Dates: start: 2019, end: 2019
  8. MELATONIN [Concomitant]
     Active Substance: MELATONIN
     Dosage: 5 MG, BEFORE BEDTIME
  9. GLUCOSE TABLETS [Concomitant]
     Active Substance: DEXTROSE
     Dosage: UNK, AS NEEDED

REACTIONS (6)
  - Off label use [Not Recovered/Not Resolved]
  - Skin erosion [Recovering/Resolving]
  - Blood glucose decreased [Recovering/Resolving]
  - Product dose omission [Recovered/Resolved]
  - Pruritus generalised [Not Recovered/Not Resolved]
  - Tremor [Recovering/Resolving]

NARRATIVE: CASE EVENT DATE: 2019
